FAERS Safety Report 14209817 (Version 17)
Quarter: 2020Q4

REPORT INFORMATION
  Report Type: Spontaneous
  Country: US (occurrence: US)
  Receive Date: 20171121
  Receipt Date: 20201026
  Transmission Date: 20210113
  Serious: No
  Sender: FDA-Public Use
  Company Number: US-PFIZER INC-2017499940

PATIENT
  Age: 74 Year
  Sex: Female
  Weight: 99 kg

DRUGS (5)
  1. LYRICA [Suspect]
     Active Substance: PREGABALIN
     Indication: NEUROPATHY PERIPHERAL
     Dosage: 150 MG TWICE A DAY (75 MG, 2 CAPSULES IN THE MORNING, 2 CAPSULES IN EVENING)
     Route: 048
     Dates: start: 20170117
  2. XARELTO [Concomitant]
     Active Substance: RIVAROXABAN
     Indication: ATRIAL FIBRILLATION
     Dosage: 20 MG, 1X/DAY [20MG TABLET ONCE DAILY ]
  3. LYRICA [Suspect]
     Active Substance: PREGABALIN
     Indication: POLYNEUROPATHY
     Dosage: 100 MG, 3X/DAY (100 MG, ONE CAPSULE IN THE MORNING, ONE CAPSULE AT 4:00 PM AND ONE CAPSULE AT NIGHT)
     Dates: start: 20180626
  4. LYRICA [Suspect]
     Active Substance: PREGABALIN
     Indication: ARTHRALGIA
     Dosage: 3 A DAY
     Dates: start: 2020
  5. LYRICA [Suspect]
     Active Substance: PREGABALIN
     Indication: DIABETIC NEUROPATHY
     Dosage: 75 MG, 2X/DAY

REACTIONS (5)
  - Essential tremor [Recovering/Resolving]
  - Nasal congestion [Unknown]
  - Intentional product misuse [Unknown]
  - Intentional product use issue [Unknown]
  - Thinking abnormal [Unknown]

NARRATIVE: CASE EVENT DATE: 20180626
